FAERS Safety Report 7871230 (Version 2)
Quarter: 2013Q1

REPORT INFORMATION
  Report Type: Spontaneous
  Country: CA (occurrence: CA)
  Receive Date: 20110325
  Receipt Date: 20130204
  Transmission Date: 20140127
  Serious: Yes (Hospitalization, Other)
  Sender: FDA-Public Use
  Company Number: CA-PFIZER INC-2011063011

PATIENT
  Age: 54 Year
  Sex: Female

DRUGS (3)
  1. PIPERACILLIN/TAZOBACTAM [Suspect]
     Indication: URINARY TRACT INFECTION
     Dosage: UNK
     Route: 042
  2. AZITHROMYCIN [Concomitant]
     Dosage: UNK
     Route: 048
  3. CIPROFLOXACIN [Concomitant]
     Dosage: UNK
     Route: 048

REACTIONS (1)
  - Pulmonary eosinophilia [Recovered/Resolved]
